FAERS Safety Report 15308002 (Version 1)
Quarter: 2018Q3

REPORT INFORMATION
  Report Type: Spontaneous
  Country: GB (occurrence: GB)
  Receive Date: 20180822
  Receipt Date: 20180822
  Transmission Date: 20181010
  Serious: Yes (Other)
  Sender: FDA-Public Use
  Company Number: GB-SHIRE-GB201831641

PATIENT

DRUGS (2)
  1. PENTASA [Suspect]
     Active Substance: MESALAMINE
     Indication: PRODUCT USED FOR UNKNOWN INDICATION
     Route: 065
  2. 476 (MESALAZINE/MESALAMINE) [Suspect]
     Active Substance: MESALAMINE
     Indication: PRODUCT USED FOR UNKNOWN INDICATION
     Dosage: 4000 MG (4 TABLETS (500 MG) IN THE MORNING AND 4 TABLETS AT NIGHT), 1X/DAY:QD
     Route: 065

REACTIONS (5)
  - Abdominal distension [Unknown]
  - Haemorrhage [Unknown]
  - Malaise [Unknown]
  - Drug dose omission [Recovered/Resolved]
  - Overdose [Unknown]
